FAERS Safety Report 4341811-0 (Version None)
Quarter: 2004Q2

REPORT INFORMATION
  Report Type: 
  Country: None (occurrence: None)
  Receive Date: 20040420
  Receipt Date: 20040408
  Transmission Date: 20050107
  Serious: Yes (Hospitalization, Other)
  Sender: FDA-Public Use
  Company Number: FR-GLAXOSMITHKLINE-B0330111A

PATIENT
  Sex: Female
  Weight: 2.2 kg

DRUGS (3)
  1. RETROVIR [Suspect]
     Indication: ANTIVIRAL PROPHYLAXIS
     Dosage: 4MG PER DAY
     Route: 048
     Dates: start: 20040407, end: 20040407
  2. RETROVIR [Suspect]
     Dates: start: 20040407, end: 20040407
  3. ANTIRETROVIRAL MEDICATIONS [Suspect]
     Indication: HIV INFECTION

REACTIONS (7)
  - ACCIDENTAL OVERDOSE [None]
  - ANAEMIA NEONATAL [None]
  - CAESAREAN SECTION [None]
  - DRUG EXPOSURE DURING PREGNANCY [None]
  - MATERNAL DRUGS AFFECTING FOETUS [None]
  - MEDICATION ERROR [None]
  - SMALL FOR DATES BABY [None]
